FAERS Safety Report 4426668-1 (Version None)
Quarter: 2004Q3

REPORT INFORMATION
  Report Type: 
  Country: None (occurrence: None)
  Receive Date: 20040811
  Receipt Date: 20040729
  Transmission Date: 20050211
  Serious: Yes (Other)
  Sender: FDA-Public Use
  Company Number: HQWYE060824MAR04

PATIENT
  Age: 51 Year
  Sex: Male
  Weight: 83.99 kg

DRUGS (2)
  1. PRIMATENE MIST [Suspect]
     Indication: ASTHMA
     Dosage: 1 PUFF AS NEEDED, INHALATION
     Route: 055
     Dates: start: 20031201, end: 20040318
  2. VICODIN [Concomitant]

REACTIONS (12)
  - AGE INDETERMINATE MYOCARDIAL INFARCTION [None]
  - ASTHMA [None]
  - BLOOD PRESSURE INCREASED [None]
  - BURN OF INTERNAL ORGANS [None]
  - DILATATION ATRIAL [None]
  - DIZZINESS [None]
  - DYSPNOEA [None]
  - FEELING ABNORMAL [None]
  - FEELING COLD [None]
  - LOSS OF CONSCIOUSNESS [None]
  - LUNG DISORDER [None]
  - RESPIRATORY TRACT IRRITATION [None]
